FAERS Safety Report 6844772-5 (Version None)
Quarter: 2010Q3

REPORT INFORMATION
  Report Type: 
  Country: None (occurrence: None)
  Receive Date: 20100715
  Receipt Date: 20100706
  Transmission Date: 20110219
  Serious: Yes (Hospitalization)
  Sender: FDA-Public Use
  Company Number: GXKR2010BR07491

PATIENT
  Age: 12 Year
  Sex: Male

DRUGS (6)
  1. ITRACONAZOLE [Suspect]
     Indication: PARACOCCIDIOIDES INFECTION
     Route: 065
  2. ITRACONAZOLE [Suspect]
     Dosage: 200 MG, UNK
     Route: 065
     Dates: end: 20091201
  3. SULFAMETHOXAZOLE AND TRIMETHOPRIM [Suspect]
     Indication: PARACOCCIDIOIDES INFECTION
     Dosage: 8 MG/KG, DAILY
     Route: 065
     Dates: end: 20060101
  4. SULFAMETHOXAZOLE AND TRIMETHOPRIM [Suspect]
     Route: 051
  5. AMPHOTERICIN B [Suspect]
     Indication: PARACOCCIDIOIDES INFECTION
     Dosage: 1 MG/KG, DAILY
     Route: 065
  6. AMPHOTERICIN B [Suspect]
     Dosage: 500 MG, UNK
     Route: 065

REACTIONS (5)
  - ABDOMINAL PAIN [None]
  - LYMPHADENOPATHY [None]
  - PARADOXICAL DRUG REACTION [None]
  - PURULENT DISCHARGE [None]
  - PYREXIA [None]
